FAERS Safety Report 6492212-0 (Version None)
Quarter: 2009Q4

REPORT INFORMATION
  Report Type: 
  Country: None (occurrence: None)
  Receive Date: 20091214
  Receipt Date: 20091117
  Transmission Date: 20100525
  Serious: No
  Sender: FDA-Public Use
  Company Number: A0805993A

PATIENT
  Age: 80 Year
  Sex: Female

DRUGS (8)
  1. AVANDARYL [Suspect]
     Dosage: 1TAB TWICE PER DAY
     Route: 048
     Dates: start: 20090823, end: 20090825
  2. ADVAIR DISKUS 100/50 [Suspect]
     Indication: BRONCHITIS
     Dosage: 1PUFF TWICE PER DAY
     Route: 055
     Dates: start: 20090616, end: 20090619
  3. DIOVAN [Concomitant]
  4. LOVASTATIN [Concomitant]
  5. MIRAPEX [Concomitant]
  6. OMEPRAZOLE [Concomitant]
  7. LIDODERM [Concomitant]
  8. ACTOS [Concomitant]

REACTIONS (8)
  - DIZZINESS [None]
  - DYSPHONIA [None]
  - FEAR [None]
  - GAIT DISTURBANCE [None]
  - HEADACHE [None]
  - NAUSEA [None]
  - THROAT TIGHTNESS [None]
  - VISION BLURRED [None]
